FAERS Safety Report 9214180 (Version 3)
Quarter: 2013Q4

REPORT INFORMATION
  Report Type: Spontaneous
  Country: US (occurrence: US)
  Receive Date: 20130405
  Receipt Date: 20131028
  Transmission Date: 20140711
  Serious: Yes (Death, Life-Threatening, Other)
  Sender: FDA-Public Use
  Company Number: US-MERCK-1304USA001843

PATIENT
  Sex: Female
  Weight: 104.31 kg

DRUGS (3)
  1. JANUVIA [Suspect]
     Indication: TYPE 2 DIABETES MELLITUS
     Dosage: 100 MG, QD
     Route: 048
     Dates: start: 20110429, end: 20111230
  2. METFORMIN [Concomitant]
     Indication: TYPE 2 DIABETES MELLITUS
     Dosage: 500 MG, QAM
     Route: 048
  3. METFORMIN [Concomitant]
     Dosage: 1000 MG, QPM
     Route: 048

REACTIONS (10)
  - Adenocarcinoma pancreas [Fatal]
  - Metastases to liver [Unknown]
  - Spinal laminectomy [Unknown]
  - Biopsy liver [Unknown]
  - Hyperlipidaemia [Unknown]
  - Hypertension [Unknown]
  - Nausea [Unknown]
  - Vomiting [Unknown]
  - Abdominal pain [Unknown]
  - Back pain [Unknown]
